FAERS Safety Report 18189739 (Version 1)
Quarter: 2020Q3

REPORT INFORMATION
  Report Type: Spontaneous
  Country: DE (occurrence: DE)
  Receive Date: 20200825
  Receipt Date: 20200825
  Transmission Date: 20201103
  Serious: Yes (Hospitalization)
  Sender: FDA-Public Use
  Company Number: DE-AMGEN-DEUSP2020134922

PATIENT
  Age: 62 Year
  Sex: Female
  Weight: 77.9 kg

DRUGS (2)
  1. KANJINTI [Suspect]
     Active Substance: TRASTUZUMAB-ANNS
     Indication: HER2 POSITIVE BREAST CANCER
     Dosage: 623.2 MICROGRAM
     Route: 042
  2. PERJETA [Suspect]
     Active Substance: PERTUZUMAB
     Indication: HER2 POSITIVE BREAST CANCER
     Dosage: 840 MICROGRAM
     Route: 042

REACTIONS (5)
  - Chills [Recovered/Resolved]
  - Tachycardia [Recovered/Resolved]
  - Cold sweat [Recovered/Resolved]
  - Off label use [Unknown]
  - Vomiting [Recovered/Resolved]

NARRATIVE: CASE EVENT DATE: 20191008
